FAERS Safety Report 5652581-8 (Version None)
Quarter: 2008Q1

REPORT INFORMATION
  Report Type: 
  Country: None (occurrence: None)
  Receive Date: 20080306
  Receipt Date: 20080303
  Transmission Date: 20080703
  Serious: Yes (Hospitalization)
  Sender: FDA-Public Use
  Company Number: US-ASTRAZENECA-2008UW02816

PATIENT
  Age: 67 Year
  Sex: Female
  Weight: 72.3 kg

DRUGS (5)
  1. CRESTOR [Suspect]
     Indication: BLOOD CHOLESTEROL INCREASED
     Route: 048
     Dates: start: 20080116
  2. ATENOLOL [Concomitant]
     Indication: HYPERTENSION
     Route: 048
  3. VIVELLE [Concomitant]
     Indication: HORMONE REPLACEMENT THERAPY
     Route: 062
  4. VITAMIN CAP [Concomitant]
  5. CALCIUM [Concomitant]

REACTIONS (1)
  - COLITIS ISCHAEMIC [None]
